FAERS Safety Report 23010703 (Version 4)
Quarter: 2023Q4

REPORT INFORMATION
  Report Type: Report from Study
  Country: US (occurrence: US)
  Receive Date: 20230929
  Receipt Date: 20231208
  Transmission Date: 20240110
  Serious: Yes (Hospitalization)
  Sender: FDA-Public Use
  Company Number: US-ARGENX-2023-ARGX-US002374

PATIENT

DRUGS (2)
  1. VYVGART [Suspect]
     Active Substance: EFGARTIGIMOD ALFA-FCAB
     Indication: Myasthenia gravis
     Dosage: 10 MG/KG
     Route: 042
     Dates: start: 20230614
  2. VYVGART [Suspect]
     Active Substance: EFGARTIGIMOD ALFA-FCAB
     Dosage: 10 MG/KG
     Route: 042
     Dates: start: 20230705

REACTIONS (9)
  - Gait disturbance [Unknown]
  - Asthenia [Not Recovered/Not Resolved]
  - Paraesthesia [Unknown]
  - Muscular weakness [Unknown]
  - Symptom recurrence [Unknown]
  - Myasthenia gravis [Unknown]
  - Dysphagia [Unknown]
  - Pain in extremity [Not Recovered/Not Resolved]
  - Wound [Unknown]

NARRATIVE: CASE EVENT DATE: 20230701
